FAERS Safety Report 18627648 (Version 1)
Quarter: 2020Q4

REPORT INFORMATION
  Report Type: Spontaneous
  Country: ZA (occurrence: ZA)
  Receive Date: 20201217
  Receipt Date: 20201217
  Transmission Date: 20210114
  Serious: No
  Sender: FDA-Public Use
  Company Number: ZA-LUPIN PHARMACEUTICALS INC.-2020-05114

PATIENT
  Sex: Male

DRUGS (6)
  1. SANDOZ ISOSORBIDE DINITRATE [Concomitant]
     Indication: CARDIAC DISORDER
     Dosage: 5 MILLIGRAM
     Route: 048
  2. DYNA GLICLAZIDE [Concomitant]
     Active Substance: GLICLAZIDE
     Indication: DIABETES MELLITUS
     Dosage: 30 MILLIGRAM
     Route: 048
  3. AMLOC TABLETS [Suspect]
     Active Substance: AMLODIPINE BESYLATE
     Indication: HYPERTENSION
     Dosage: 5 MILLIGRAM
     Route: 048
     Dates: start: 20200618, end: 2020
  4. ECOTRIN [Concomitant]
     Active Substance: ASPIRIN
     Indication: ANTIVIRAL PROPHYLAXIS
     Dosage: 81 MILLIGRAM
     Route: 048
  5. SANDOZ ISOSORBIDE DINITRATE [Concomitant]
     Dosage: 10 MILLIGRAM
     Route: 048
  6. CO ZOMEVEK [Concomitant]
     Active Substance: HYDROCHLOROTHIAZIDE\VALSARTAN
     Indication: HYPERTENSION
     Dosage: 160/12.5 MG
     Route: 048

REACTIONS (1)
  - Peripheral swelling [Recovered/Resolved]

NARRATIVE: CASE EVENT DATE: 2020
